FAERS Safety Report 8277559-X (Version None)
Quarter: 2012Q1

REPORT INFORMATION
  Report Type: 
  Country: None (occurrence: None)
  Receive Date: 20120312
  Receipt Date: 20120111
  Transmission Date: 20120608
  Serious: No
  Sender: FDA-Public Use
  Company Number: 2012SP002802

PATIENT
  Age: 34 Year
  Sex: Male

DRUGS (2)
  1. ATIVAN [Concomitant]
  2. SAPHRIS [Suspect]
     Indication: SCHIZOPHRENIA
     Dosage: 10 MG;BID;SL
     Route: 060
     Dates: start: 20110501, end: 20111201

REACTIONS (1)
  - PSYCHOMOTOR HYPERACTIVITY [None]
